FAERS Safety Report 7237633-3 (Version None)
Quarter: 2011Q1

REPORT INFORMATION
  Report Type: 
  Country: None (occurrence: None)
  Receive Date: 20110121
  Receipt Date: 20110112
  Transmission Date: 20110831
  Serious: Yes (Hospitalization)
  Sender: FDA-Public Use
  Company Number: PHHY2011US02964

PATIENT
  Sex: Male

DRUGS (1)
  1. EXJADE [Suspect]
     Indication: SICKLE CELL ANAEMIA
     Dosage: 250 MG DAILY
     Route: 048
     Dates: start: 20101104

REACTIONS (3)
  - COUGH [None]
  - BODY TEMPERATURE INCREASED [None]
  - CHROMATURIA [None]
